FAERS Safety Report 17605878 (Version 2)
Quarter: 2020Q3

REPORT INFORMATION
  Report Type: Spontaneous
  Country: US (occurrence: US)
  Receive Date: 20200331
  Receipt Date: 20200904
  Transmission Date: 20201102
  Serious: Yes (Other)
  Sender: FDA-Public Use
  Company Number: US-ELI_LILLY_AND_COMPANY-US202003010922

PATIENT
  Age: 11 Year
  Sex: Male
  Weight: 86 kg

DRUGS (14)
  1. ZYPREXA [Suspect]
     Active Substance: OLANZAPINE
     Indication: AFFECTIVE DISORDER
     Dosage: 2.5 MG, DAILY (BEDTIME)
     Route: 048
  2. ZYPREXA [Suspect]
     Active Substance: OLANZAPINE
     Indication: AFFECTIVE DISORDER
     Dosage: 1 DOSAGE FORM, EACH EVENING AT BEDTIME
     Route: 048
     Dates: start: 20070828, end: 20070828
  3. ZYPREXA [Suspect]
     Active Substance: OLANZAPINE
     Indication: ADJUSTMENT DISORDER WITH MIXED DISTURBANCE OF EMOTION AND CONDUCT
     Dosage: 1 DOSAGE FORM, EACH EVENING AT BEDTIME
     Route: 048
     Dates: start: 20071105
  4. ZYPREXA [Suspect]
     Active Substance: OLANZAPINE
     Indication: AFFECTIVE DISORDER
     Dosage: 10 MG, DAILY
     Route: 048
  5. ZYPREXA [Suspect]
     Active Substance: OLANZAPINE
     Indication: ADJUSTMENT DISORDER WITH MIXED DISTURBANCE OF EMOTION AND CONDUCT
  6. ZOLOFT [Suspect]
     Active Substance: SERTRALINE HYDROCHLORIDE
     Dosage: 1 DOSAGE FORM, DAILY AT BEDTIME
     Route: 048
     Dates: start: 20080102
  7. ZYPREXA [Suspect]
     Active Substance: OLANZAPINE
     Indication: ADJUSTMENT DISORDER WITH MIXED DISTURBANCE OF EMOTION AND CONDUCT
  8. ZYPREXA [Suspect]
     Active Substance: OLANZAPINE
     Indication: ADJUSTMENT DISORDER WITH MIXED DISTURBANCE OF EMOTION AND CONDUCT
  9. ZOLOFT [Suspect]
     Active Substance: SERTRALINE HYDROCHLORIDE
     Indication: PRODUCT USED FOR UNKNOWN INDICATION
     Dosage: 1 DOSAGE FORM, DAILY
     Route: 048
     Dates: start: 20061224
  10. ZYPREXA [Suspect]
     Active Substance: OLANZAPINE
     Indication: AFFECTIVE DISORDER
     Dosage: 5 MG, DAILY (BEDTIME)
     Route: 048
     Dates: start: 20070410
  11. ZYPREXA [Suspect]
     Active Substance: OLANZAPINE
     Dosage: 1 DOSAGE FORM, EACH EVENING AT BEDTIME
     Route: 048
     Dates: start: 20080102
  12. ZOLOFT [Suspect]
     Active Substance: SERTRALINE HYDROCHLORIDE
     Dosage: 1 DOSAGE FORM, DAILY AT BEDTIME
     Route: 048
     Dates: start: 20071105
  13. ZOLOFT [Suspect]
     Active Substance: SERTRALINE HYDROCHLORIDE
     Dosage: 1 DOSAGE FORM, DAILY AT BEDTIME
     Route: 048
     Dates: start: 20070828, end: 20070828
  14. ATIVAN [Concomitant]
     Active Substance: LORAZEPAM
     Indication: PRODUCT USED FOR UNKNOWN INDICATION

REACTIONS (9)
  - Gynaecomastia [Unknown]
  - Hormone level abnormal [Unknown]
  - Hypersomnia [Unknown]
  - Fatigue [Unknown]
  - Hypertension [Unknown]
  - Increased appetite [Unknown]
  - Weight increased [Not Recovered/Not Resolved]
  - Disturbance in attention [Unknown]
  - Insomnia [Unknown]

NARRATIVE: CASE EVENT DATE: 2007
